FAERS Safety Report 17961849 (Version 2)
Quarter: 2021Q3

REPORT INFORMATION
  Report Type: Spontaneous
  Country: US (occurrence: US)
  Receive Date: 20200629
  Receipt Date: 20210728
  Transmission Date: 20211014
  Serious: No
  Sender: FDA-Public Use
  Company Number: US-ROCHE-2587264

PATIENT
  Age: 42 Year
  Sex: Female

DRUGS (3)
  1. XELODA [Suspect]
     Active Substance: CAPECITABINE
     Route: 048
     Dates: start: 202006
  2. XELODA [Suspect]
     Active Substance: CAPECITABINE
     Indication: PRODUCT USED FOR UNKNOWN INDICATION
     Route: 048
     Dates: start: 20200406
  3. XELODA [Suspect]
     Active Substance: CAPECITABINE
     Dosage: 2000 MG AND 1500 MG
     Route: 048
     Dates: start: 202005

REACTIONS (6)
  - Irritable bowel syndrome [Unknown]
  - Neuropathy peripheral [Unknown]
  - Abdominal distension [Unknown]
  - Gastric disorder [Unknown]
  - Oral herpes [Unknown]
  - Decreased appetite [Unknown]

NARRATIVE: CASE EVENT DATE: 20200406
